FAERS Safety Report 26045893 (Version 1)
Quarter: 2025Q4

REPORT INFORMATION
  Report Type: Spontaneous
  Country: AU (occurrence: AU)
  Receive Date: 20251114
  Receipt Date: 20251114
  Transmission Date: 20260117
  Serious: Yes (Hospitalization, Other)
  Sender: RANBAXY
  Company Number: AU-SUN PHARMACEUTICAL INDUSTRIES LTD-2025R1-536139

PATIENT
  Age: 75 Year
  Sex: Female

DRUGS (22)
  1. LENALIDOMIDE [Suspect]
     Active Substance: LENALIDOMIDE
     Indication: Follicular lymphoma
     Dosage: 20 MILLIGRAM
     Route: 048
     Dates: start: 20250515, end: 20250621
  2. EPCORITAMAB [Suspect]
     Active Substance: EPCORITAMAB
     Indication: Follicular lymphoma
     Dosage: UNK
     Route: 065
     Dates: start: 2025
  3. RITUXIMAB [Suspect]
     Active Substance: RITUXIMAB
     Indication: Follicular lymphoma
     Dosage: 670 MILLIGRAM
     Route: 042
     Dates: start: 20250515, end: 2025
  4. RITUXIMAB [Suspect]
     Active Substance: RITUXIMAB
     Dosage: 2680 MILLIGRAM
     Route: 042
     Dates: start: 2025
  5. KEFLEX [Concomitant]
     Active Substance: CEPHALEXIN
     Indication: Antibiotic prophylaxis
     Dosage: UNK
     Route: 065
     Dates: start: 20250612
  6. NALOXONE HYDROCHLORIDE\OXYCODONE HYDROCHLORIDE [Concomitant]
     Active Substance: NALOXONE HYDROCHLORIDE\OXYCODONE HYDROCHLORIDE
     Indication: Pleural effusion
     Dosage: UNK
     Route: 065
     Dates: start: 20250531
  7. ASPIRIN [Concomitant]
     Active Substance: ASPIRIN
     Indication: Coronary artery disease
     Dosage: 100 MILLIGRAM
     Route: 065
     Dates: start: 2020
  8. DAPSONE [Concomitant]
     Active Substance: DAPSONE
     Indication: Antibiotic prophylaxis
     Dosage: 100 MILLIGRAM
     Route: 065
     Dates: start: 20250612
  9. DENOSUMAB [Concomitant]
     Active Substance: DENOSUMAB
     Indication: Osteoporosis
     Dosage: 60 MILLIGRAM
     Route: 065
     Dates: start: 2013
  10. FUROSEMIDE [Concomitant]
     Active Substance: FUROSEMIDE
     Indication: Effusion
     Dosage: 40 MILLIGRAM
     Route: 065
     Dates: start: 20250528, end: 20250625
  11. HYDROCORTISONE [Concomitant]
     Active Substance: HYDROCORTISONE
     Indication: Vitamin B12 deficiency
     Dosage: UNK
     Route: 065
     Dates: start: 2023
  12. IRBESARTAN [Concomitant]
     Active Substance: IRBESARTAN
     Indication: Hypertension
     Dosage: 75 MILLIGRAM
     Route: 065
     Dates: start: 1980, end: 20250621
  13. MAGNESIUM [Concomitant]
     Active Substance: MAGNESIUM
     Indication: Pleural effusion
     Dosage: 500 MILLIGRAM
     Route: 065
     Dates: start: 20250531
  14. METOCLOPRAMIDE [Concomitant]
     Active Substance: METOCLOPRAMIDE
     Indication: Nausea
     Dosage: UNK
     Route: 065
     Dates: start: 20250527
  15. ONDANSETRON [Concomitant]
     Active Substance: ONDANSETRON
     Indication: Nausea
     Dosage: UNK
     Route: 065
     Dates: start: 20250527
  16. OXYCODONE [Concomitant]
     Active Substance: OXYCODONE
     Indication: Pleural effusion
     Dosage: 5 MILLIGRAM
     Route: 065
     Dates: start: 20250530
  17. PREGABALIN [Concomitant]
     Active Substance: PREGABALIN
     Indication: Neuropathy peripheral
     Dosage: UNK
     Route: 065
     Dates: start: 2015
  18. TAPENTADOL [Concomitant]
     Active Substance: TAPENTADOL
     Indication: Osteoporosis
     Dosage: 50 MILLIGRAM
     Route: 065
     Dates: start: 2024
  19. TEMAZEPAM [Concomitant]
     Active Substance: TEMAZEPAM
     Indication: Sleep disorder therapy
     Dosage: 10 MILLIGRAM
     Route: 065
     Dates: start: 20250527
  20. ALBUTEROL SULFATE [Concomitant]
     Active Substance: ALBUTEROL SULFATE
     Indication: Emphysema
     Dosage: 100 MICROGRAM
     Dates: start: 2021
  21. VALACYCLOVIR HYDROCHLORIDE [Concomitant]
     Active Substance: VALACYCLOVIR HYDROCHLORIDE
     Indication: Antiviral prophylaxis
     Dosage: 500 MILLIGRAM
     Route: 048
     Dates: start: 20250515
  22. CLONIDINE HYDROCHLORIDE [Concomitant]
     Active Substance: CLONIDINE HYDROCHLORIDE
     Indication: Migraine
     Dosage: 100 MICROGRAM
     Route: 048
     Dates: start: 2021

REACTIONS (2)
  - Lower respiratory tract infection [Recovered/Resolved]
  - Orthostatic hypotension [Recovered/Resolved]

NARRATIVE: CASE EVENT DATE: 20250620
